FAERS Safety Report 11778408 (Version 2)
Quarter: 2015Q4

REPORT INFORMATION
  Report Type: Spontaneous
  Country: ES (occurrence: ES)
  Receive Date: 20151125
  Receipt Date: 20151210
  Transmission Date: 20160304
  Serious: Yes (Other)
  Sender: FDA-Public Use
  Company Number: ES-AMGEN-ESPSP2015123608

PATIENT
  Age: 80 Year
  Sex: Female

DRUGS (6)
  1. TROMALYT [Concomitant]
     Active Substance: ASPIRIN
     Indication: ARTERIOSCLEROSIS
     Dosage: UNK UNK, QD
     Route: 048
     Dates: start: 20111026
  2. VALSARTAN. [Concomitant]
     Active Substance: VALSARTAN
     Indication: HYPERTENSION
     Dosage: UNK UNK, QD
     Route: 048
     Dates: start: 20111026
  3. PROLIA [Suspect]
     Active Substance: DENOSUMAB
     Indication: OSTEOPOROSIS
     Dosage: 60 MG, Q6MO
     Route: 058
     Dates: start: 20120425, end: 20151025
  4. PARACETAMOL [Concomitant]
     Active Substance: ACETAMINOPHEN
     Indication: PAIN
     Dosage: UNK UNK, QD
     Route: 048
  5. HIDROFEROL [Concomitant]
     Active Substance: CALCIFEDIOL
     Indication: VITAMIN D DEFICIENCY
     Dosage: UNK
     Route: 048
     Dates: start: 20090601
  6. TRADJENTA [Concomitant]
     Active Substance: LINAGLIPTIN
     Indication: DIABETES MELLITUS
     Dosage: UNK UNK, QD
     Route: 048
     Dates: start: 20110325

REACTIONS (1)
  - Hepatitis C [Recovering/Resolving]

NARRATIVE: CASE EVENT DATE: 201506
